FAERS Safety Report 7175915-4 (Version None)
Quarter: 2010Q4

REPORT INFORMATION
  Report Type: 
  Country: None (occurrence: None)
  Receive Date: 20101220
  Receipt Date: 20101215
  Transmission Date: 20110411
  Serious: Yes (Hospitalization)
  Sender: FDA-Public Use
  Company Number: US-BIOGENIDEC-2010BI037346

PATIENT
  Age: 63 Year
  Sex: Female
  Weight: 79 kg

DRUGS (26)
  1. TYSABRI [Suspect]
     Indication: MULTIPLE SCLEROSIS
     Route: 042
     Dates: start: 20100823
  2. TYSABRI [Suspect]
     Route: 042
     Dates: start: 20100823
  3. XANAX [Concomitant]
  4. ELAVIL [Concomitant]
  5. CELEXA [Concomitant]
  6. LASIX [Concomitant]
  7. NEURONTIN [Concomitant]
  8. VOLTAREN [Concomitant]
  9. MICRO-K [Concomitant]
  10. LORTAB [Concomitant]
     Indication: PAIN
  11. LISINOPRIL [Concomitant]
     Indication: HYPERTENSION
  12. INSULIN [Concomitant]
  13. CRESTOR [Concomitant]
     Indication: CEREBROVASCULAR ACCIDENT
  14. LOVAZA [Concomitant]
  15. NORVASC [Concomitant]
  16. LEVEMIR [Concomitant]
  17. STEROIDS (NOS) [Concomitant]
     Indication: MULTIPLE SCLEROSIS
  18. CLONIDINE [Concomitant]
     Indication: HYPERTENSION
  19. ASPIRIN [Concomitant]
  20. PLAVIX [Concomitant]
     Indication: CEREBROVASCULAR ACCIDENT
  21. FAMOTIDINE [Concomitant]
  22. TRANDATE [Concomitant]
  23. LEVOTHYROXINE [Concomitant]
  24. NITROGLYCERIN [Concomitant]
  25. GLUCOTROL [Concomitant]
  26. ZANTAC [Concomitant]

REACTIONS (14)
  - BLINDNESS [None]
  - CEREBRAL HAEMORRHAGE [None]
  - CEREBROVASCULAR ACCIDENT [None]
  - DISORIENTATION [None]
  - DIZZINESS [None]
  - EYE HAEMORRHAGE [None]
  - HYPERTENSION [None]
  - IMPAIRED DRIVING ABILITY [None]
  - MULTIPLE SCLEROSIS RELAPSE [None]
  - OROPHARYNGEAL PAIN [None]
  - STRESS [None]
  - TRANSIENT ISCHAEMIC ATTACK [None]
  - URINARY INCONTINENCE [None]
  - VISUAL IMPAIRMENT [None]
